FAERS Safety Report 15099821 (Version 1)
Quarter: 2018Q3

REPORT INFORMATION
  Report Type: Report from Study
  Country: IT (occurrence: IT)
  Receive Date: 20180703
  Receipt Date: 20180703
  Transmission Date: 20181010
  Serious: Yes (Hospitalization)
  Sender: FDA-Public Use
  Company Number: IT-TEVA-2018-IT-918479

PATIENT
  Age: 47 Year
  Sex: Male

DRUGS (3)
  1. EN [Suspect]
     Active Substance: DELORAZEPAM
     Route: 048
     Dates: start: 20160823, end: 20160823
  2. EN [Concomitant]
     Active Substance: DELORAZEPAM
     Route: 048
  3. OLANZAPINE. [Suspect]
     Active Substance: OLANZAPINE
     Route: 048
     Dates: start: 20160823, end: 20160823

REACTIONS (3)
  - Loss of consciousness [Recovered/Resolved]
  - Intentional self-injury [Recovered/Resolved]
  - Sopor [Recovered/Resolved]

NARRATIVE: CASE EVENT DATE: 20160823
